FAERS Safety Report 17487450 (Version 1)
Quarter: 2020Q1

REPORT INFORMATION
  Report Type: Spontaneous
  Country: US (occurrence: US)
  Receive Date: 20200303
  Receipt Date: 20200303
  Transmission Date: 20200409
  Serious: No
  Sender: FDA-Public Use
  Company Number: US-ELI_LILLY_AND_COMPANY-US202002013978

PATIENT
  Sex: Male

DRUGS (1)
  1. EMGALITY [Suspect]
     Active Substance: GALCANEZUMAB-GNLM
     Indication: PRODUCT USED FOR UNKNOWN INDICATION
     Dosage: 1 DOSAGE FORM, UNKNOWN
     Route: 065
     Dates: start: 20200205

REACTIONS (6)
  - Blister rupture [Unknown]
  - Blood blister [Unknown]
  - Oral mucosal blistering [Unknown]
  - Teething [Unknown]
  - Oral discomfort [Unknown]
  - Oral pain [Unknown]

NARRATIVE: CASE EVENT DATE: 202002
